FAERS Safety Report 5221272-X (Version None)
Quarter: 2007Q1

REPORT INFORMATION
  Report Type: 
  Country: None (occurrence: None)
  Receive Date: 20070126
  Receipt Date: 20070118
  Transmission Date: 20070707
  Serious: Yes (Hospitalization, Other)
  Sender: FDA-Public Use
  Company Number: US-PFIZER INC-2006129983

PATIENT
  Sex: Male
  Weight: 56.7 kg

DRUGS (1)
  1. ALPRAZOLAM [Suspect]
     Indication: DEPRESSION
     Dates: start: 20060101, end: 20060101

REACTIONS (2)
  - PERONEAL NERVE PALSY [None]
  - SCIATIC NERVE INJURY [None]
